FAERS Safety Report 26009214 (Version 1)
Quarter: 2025Q4

REPORT INFORMATION
  Report Type: Spontaneous
  Country: US (occurrence: US)
  Receive Date: 20251107
  Receipt Date: 20251107
  Transmission Date: 20260118
  Serious: Yes (Hospitalization)
  Sender: CSL BEHRING
  Company Number: US-BEH-2025224441

PATIENT
  Sex: Male

DRUGS (5)
  1. HUMATE-P [Suspect]
     Active Substance: HUMAN COAGULATION FACTOR VIII/VON WILLEBRAND FACTOR COMPLEX
     Indication: Von Willebrand^s disease
     Dosage: 3445 VWF UNITS, ONCE FOR PRE-OP DOSE
     Route: 042
     Dates: start: 202509
  2. HUMATE-P [Suspect]
     Active Substance: HUMAN COAGULATION FACTOR VIII/VON WILLEBRAND FACTOR COMPLEX
     Dosage: 3445 VWF UNITS, DAILY ON POSTOP DAYS 1 TO 4
     Route: 042
     Dates: start: 202509
  3. HUMATE-P [Suspect]
     Active Substance: HUMAN COAGULATION FACTOR VIII/VON WILLEBRAND FACTOR COMPLEX
     Dosage: 1723 VWF UNITS, ONCE 12 HOURS AFTER PRE-OP DOSE
     Route: 042
     Dates: start: 202509
  4. HUMATE-P [Suspect]
     Active Substance: HUMAN COAGULATION FACTOR VIII/VON WILLEBRAND FACTOR COMPLEX
     Dosage: 1723 VWF UNITS, ONCE DAILY ON POST-OP DAYS 5-7
     Route: 042
     Dates: start: 202509
  5. SODIUM CHLORIDE [Concomitant]
     Active Substance: SODIUM CHLORIDE

REACTIONS (1)
  - Haematuria [Unknown]
